FAERS Safety Report 13465054 (Version 5)
Quarter: 2017Q3

REPORT INFORMATION
  Report Type: Report from Study
  Country: None (occurrence: TN)
  Receive Date: 20170421
  Receipt Date: 20170724
  Transmission Date: 20171127
  Serious: Yes (Hospitalization)
  Sender: FDA-Public Use
  Company Number: TN-ABBVIE-17K-160-1945996-00

PATIENT
  Age: 61 Year
  Sex: Female

DRUGS (2)
  1. HUMIRA [Suspect]
     Active Substance: ADALIMUMAB
     Route: 058
     Dates: start: 20170510, end: 201706
  2. HUMIRA [Suspect]
     Active Substance: ADALIMUMAB
     Indication: CROHN^S DISEASE
     Route: 058
     Dates: start: 2015, end: 20170207

REACTIONS (4)
  - Intestinal obstruction [Recovered/Resolved]
  - C-reactive protein increased [Recovered/Resolved]
  - Purulence [Recovered/Resolved]
  - Iron deficiency [Recovering/Resolving]

NARRATIVE: CASE EVENT DATE: 201702
